FAERS Safety Report 23063409 (Version 2)
Quarter: 2023Q4

REPORT INFORMATION
  Report Type: Report from Study
  Country: DE (occurrence: DE)
  Receive Date: 20231013
  Receipt Date: 20231120
  Transmission Date: 20240110
  Serious: Yes (Hospitalization)
  Sender: FDA-Public Use
  Company Number: DE-Eisai Medical Research-EC-2022-115301

PATIENT
  Age: 77 Year
  Sex: Male
  Weight: 99 kg

DRUGS (14)
  1. LENVATINIB [Suspect]
     Active Substance: LENVATINIB
     Indication: Clear cell renal cell carcinoma
     Route: 048
     Dates: start: 20220322, end: 20220404
  2. LENVATINIB [Suspect]
     Active Substance: LENVATINIB
     Dosage: STARTING DOSE OF 10 MG, FLUCTUATED DOSAGE
     Route: 048
     Dates: start: 20220405, end: 20220412
  3. LENVATINIB [Suspect]
     Active Substance: LENVATINIB
     Route: 048
     Dates: start: 20220509, end: 20220509
  4. LENVATINIB [Suspect]
     Active Substance: LENVATINIB
     Route: 048
     Dates: start: 20220531, end: 20220531
  5. LENVATINIB [Suspect]
     Active Substance: LENVATINIB
     Route: 048
     Dates: start: 20220602, end: 20220723
  6. QUAVONLIMAB [Suspect]
     Active Substance: QUAVONLIMAB
     Indication: Clear cell renal cell carcinoma
     Dosage: QUAVONLIMAB 25 MG (+) PEMBROLIZUMAB 400 MG (MK-1308A)
     Route: 042
     Dates: start: 20220322, end: 20220322
  7. PEMBROLIZUMAB [Suspect]
     Active Substance: PEMBROLIZUMAB
     Dosage: QUAVONLIMAB 25 MG (+) PEMBROLIZUMAB 400 MG (MK-1308A)
     Route: 042
     Dates: start: 20220509, end: 20220621
  8. PANTOPRAZOLE [Concomitant]
     Active Substance: PANTOPRAZOLE
     Dates: start: 202001, end: 20220419
  9. PREGABALIN [Concomitant]
     Active Substance: PREGABALIN
     Dates: start: 20200101
  10. PERINDOPRIL [Concomitant]
     Active Substance: PERINDOPRIL
     Dates: start: 202001
  11. LEVODOPA [Concomitant]
     Active Substance: LEVODOPA
     Dates: start: 202001
  12. BENSERAZIDE [Concomitant]
     Active Substance: BENSERAZIDE
     Dates: start: 202001
  13. INDAPAMIDE [Concomitant]
     Active Substance: INDAPAMIDE
     Dates: start: 202001
  14. DIPYRONE [Concomitant]
     Active Substance: DIPYRONE
     Dates: start: 202001

REACTIONS (2)
  - Hypertension [Recovered/Resolved]
  - Diarrhoea [Recovered/Resolved]

NARRATIVE: CASE EVENT DATE: 20220328
